FAERS Safety Report 6284364-2 (Version None)
Quarter: 2009Q3

REPORT INFORMATION
  Report Type: 
  Country: None (occurrence: None)
  Receive Date: 20090727
  Receipt Date: 20090717
  Transmission Date: 20100115
  Serious: Yes (Other)
  Sender: FDA-Public Use
  Company Number: US-AMGEN-QUU356423

PATIENT
  Sex: Female

DRUGS (5)
  1. ARANESP [Suspect]
     Indication: RENAL FAILURE CHRONIC
     Dates: start: 20081120, end: 20090717
  2. FOLIC ACID [Concomitant]
  3. VITAMIN B-12 [Concomitant]
  4. VENOFER [Concomitant]
     Dates: start: 20090401
  5. FERRLECIT [Concomitant]
     Dates: start: 20090325

REACTIONS (1)
  - THERAPEUTIC RESPONSE DECREASED [None]
